FAERS Safety Report 15595946 (Version 1)
Quarter: 2018Q4

REPORT INFORMATION
  Report Type: Spontaneous
  Country: US (occurrence: US)
  Receive Date: 20181107
  Receipt Date: 20181107
  Transmission Date: 20190205
  Serious: Yes (Other)
  Sender: FDA-Public Use
  Company Number: US-TORRENT-00007173

PATIENT
  Sex: Male

DRUGS (1)
  1. RISPERIDONE. [Suspect]
     Active Substance: RISPERIDONE
     Indication: PRODUCT USED FOR UNKNOWN INDICATION
     Dosage: MORE THAN 1 YEAR

REACTIONS (4)
  - Dyskinesia [Unknown]
  - Withdrawal syndrome [Unknown]
  - Akathisia [Unknown]
  - Condition aggravated [Unknown]
